FAERS Safety Report 9661401 (Version 1)
Quarter: 2013Q4

REPORT INFORMATION
  Report Type: Spontaneous
  Country: US (occurrence: US)
  Receive Date: 20131031
  Receipt Date: 20131031
  Transmission Date: 20140711
  Serious: No
  Sender: FDA-Public Use
  Company Number: US-PURDUE-USA-2010-0052076

PATIENT
  Sex: Female

DRUGS (2)
  1. OXYCONTIN (NDA 22-272) [Suspect]
     Indication: TERMINAL STATE
     Dosage: 160 MG, BID
     Dates: start: 201009
  2. OXYCONTIN (NDA 22-272) [Suspect]
     Dosage: 80 MG, QD PRN
     Dates: start: 201009

REACTIONS (2)
  - Somnolence [Unknown]
  - Abdominal discomfort [Unknown]
